FAERS Safety Report 4594643-2 (Version None)
Quarter: 2005Q1

REPORT INFORMATION
  Report Type: 
  Country: None (occurrence: None)
  Receive Date: 20050301
  Receipt Date: 20041116
  Transmission Date: 20050727
  Serious: No
  Sender: FDA-Public Use
  Company Number: US-BRISTOL-MYERS SQUIBB COMPANY-12767711

PATIENT
  Age: 56 Year
  Sex: Female
  Weight: 68 kg

DRUGS (6)
  1. ERBITUX [Suspect]
     Indication: COLON CANCER
     Route: 042
     Dates: start: 20041101, end: 20041101
  2. ACTOS [Concomitant]
  3. ASPIRIN [Concomitant]
  4. CAMPTOSAR [Concomitant]
     Dates: start: 20041101, end: 20041101
  5. INSULIN [Concomitant]
  6. IRON [Concomitant]

REACTIONS (1)
  - RASH ERYTHEMATOUS [None]
